FAERS Safety Report 4660847-3 (Version None)
Quarter: 2005Q2

REPORT INFORMATION
  Report Type: 
  Country: None (occurrence: None)
  Receive Date: 20050422
  Receipt Date: 20040823
  Transmission Date: 20051028
  Serious: No
  Sender: FDA-Public Use
  Company Number: APP200400709

PATIENT

DRUGS (10)
  1. HEPARIN SODIUM INJECTION [Suspect]
     Indication: CARDIAC OPERATION
     Dosage: INJECTION
     Dates: start: 20040101, end: 20040101
  2. HEPARIN SODIUM INJECTION [Suspect]
  3. HEPARIN SODIUM INJECTION [Suspect]
  4. HEPARIN SODIUM INJECTION [Suspect]
  5. HEPARIN SODIUM INJECTION [Suspect]
  6. HEPARIN SODIUM INJECTION [Suspect]
  7. HEPARIN SODIUM INJECTION [Suspect]
  8. HEPARIN SODIUM INJECTION [Suspect]
  9. HEPARIN SODIUM INJECTION [Suspect]
  10. HEPARIN SODIUM INJECTION [Suspect]

REACTIONS (1)
  - HEPARIN-INDUCED THROMBOCYTOPENIA [None]
